FAERS Safety Report 8679336 (Version 2)
Quarter: 2012Q4

REPORT INFORMATION
  Report Type: 
  Country: NL (occurrence: NL)
  Receive Date: 20120724
  Receipt Date: 20121001
  Transmission Date: 20130627
  Serious: Yes (Other)
  Sender: FDA-Public Use
  Company Number: PHHY2012NL062928

PATIENT
  Sex: Female
  Weight: 66 kg

DRUGS (5)
  1. SANDOSTATINE LAR [Suspect]
     Indication: ACROMEGALY
     Dosage: 20 mg, once per 4 weeks
     Dates: start: 20090526
  2. PANTOZOL [Concomitant]
     Dosage: 40 mg, BID
  3. BISOPROLOL [Concomitant]
     Dosage: 1.25 mg, QD
  4. LANOXIN [Concomitant]
     Dosage: 0.062 mg, QD
  5. FRAXODI [Concomitant]
     Dosage: 0.6 ml, QD
     Route: 058

REACTIONS (1)
  - Carcinoid tumour [Unknown]
